FAERS Safety Report 13737181 (Version 8)
Quarter: 2018Q1

REPORT INFORMATION
  Report Type: Spontaneous
  Country: JP (occurrence: JP)
  Receive Date: 20170710
  Receipt Date: 20180214
  Transmission Date: 20180508
  Serious: Yes (Other)
  Sender: FDA-Public Use
  Company Number: JP-OTSUKA-2017_014789

PATIENT
  Age: 50 Year
  Sex: Female

DRUGS (5)
  1. SAMSCA 30 MG [Suspect]
     Active Substance: TOLVAPTAN
     Dosage: 60MG/DAY,TWICE DAILY
     Route: 048
     Dates: start: 20161226, end: 20170222
  2. SAMSCA 30 MG [Suspect]
     Active Substance: TOLVAPTAN
     Indication: CONGENITAL CYSTIC KIDNEY DISEASE
     Dosage: 120MG, TWICE DAILY
     Route: 048
     Dates: start: 20170406, end: 20170506
  3. SAMSCA 30 MG [Suspect]
     Active Substance: TOLVAPTAN
     Dosage: 90MG/DAY,TWICE DAILY
     Route: 048
     Dates: start: 20170223, end: 20170405
  4. SAMSCA 30 MG [Suspect]
     Active Substance: TOLVAPTAN
     Dosage: 90MG/DAY
     Route: 048
     Dates: start: 20170507, end: 20170614
  5. SAMSCA 30 MG [Suspect]
     Active Substance: TOLVAPTAN
     Dosage: 60MG/DAY,TWICE DAILY
     Route: 048
     Dates: start: 20170615, end: 20170628

REACTIONS (2)
  - Neuralgia [Recovered/Resolved]
  - Liver disorder [Recovered/Resolved]

NARRATIVE: CASE EVENT DATE: 201705
